FAERS Safety Report 5558536-6 (Version None)
Quarter: 2007Q4

REPORT INFORMATION
  Report Type: 
  Country: None (occurrence: None)
  Receive Date: 20071214
  Receipt Date: 20070904
  Transmission Date: 20080405
  Serious: No
  Sender: FDA-Public Use
  Company Number: US-ABBOTT-07P-163-0416006-00

PATIENT
  Sex: Male
  Weight: 107 kg

DRUGS (7)
  1. HUMIRA [Suspect]
     Indication: PSORIATIC ARTHROPATHY
     Route: 058
     Dates: start: 20070601, end: 20070803
  2. ESOMEPRAZOLE MAGNESIUM [Concomitant]
     Indication: GASTROOESOPHAGEAL REFLUX DISEASE
     Route: 048
  3. FUROSEMIDE [Concomitant]
     Indication: JOINT SWELLING
     Route: 048
     Dates: start: 20070801
  4. FUROSEMIDE [Concomitant]
     Indication: ABDOMINAL DISTENSION
  5. PROPACET 100 [Concomitant]
     Indication: ARTHRALGIA
     Route: 048
  6. LAXATIVES [Concomitant]
     Indication: CONSTIPATION
     Route: 048
  7. DOCUSATE SODIUM [Concomitant]
     Indication: CONSTIPATION
     Route: 048

REACTIONS (4)
  - ABDOMINAL DISTENSION [None]
  - DYSPNOEA [None]
  - JOINT SWELLING [None]
  - WEIGHT INCREASED [None]
